FAERS Safety Report 23288806 (Version 1)
Quarter: 2023Q4

REPORT INFORMATION
  Report Type: Spontaneous
  Country: US (occurrence: None)
  Receive Date: 20231212
  Receipt Date: 20231212
  Transmission Date: 20240109
  Serious: No
  Sender: FDA-Public Use
  Company Number: None

PATIENT
  Age: 58 Year
  Sex: Female
  Weight: 72.57 kg

DRUGS (16)
  1. PAXLOVID [Suspect]
     Active Substance: NIRMATRELVIR\RITONAVIR
     Indication: COVID-19
     Dosage: FREQUENCY : TWICE A DAY; (30 TAB)?
     Route: 048
     Dates: start: 20231127, end: 20231127
  2. RALOXIFENE [Concomitant]
     Active Substance: RALOXIFENE
  3. DILTIAZEM [Concomitant]
     Active Substance: DILTIAZEM
  4. ALBUTEROL [Concomitant]
     Active Substance: ALBUTEROL
  5. FLUTICASONE PROPIONATE\SALMETEROL XINAFOATE [Concomitant]
     Active Substance: FLUTICASONE PROPIONATE\SALMETEROL XINAFOATE
  6. PROBIOTICS NOS [Concomitant]
     Active Substance: PROBIOTICS NOS
  7. PSYLLIUM [Concomitant]
     Active Substance: PLANTAGO SEED
  8. METAMUCIL [Concomitant]
     Active Substance: PLANTAGO SEED
  9. CITRA CALCIUM [Concomitant]
  10. VITAMIN D NOS [Concomitant]
     Active Substance: VITAMIN D NOS
  11. FISH OIL [Concomitant]
     Active Substance: FISH OIL
  12. HERBALS\TURMERIC [Concomitant]
     Active Substance: HERBALS\TURMERIC
  13. ALPHA LIPOIC ACID [Concomitant]
     Active Substance: .ALPHA.-LIPOIC ACID
  14. CLOBETASOL [Concomitant]
     Active Substance: CLOBETASOL
  15. ESTRADIOL [Concomitant]
     Active Substance: ESTRADIOL
  16. MUSHROOM TEA (FRESH CARP) [Concomitant]

REACTIONS (2)
  - Lip swelling [None]
  - Therapy cessation [None]

NARRATIVE: CASE EVENT DATE: 20231127
